FAERS Safety Report 4519005-5 (Version None)
Quarter: 2004Q4

REPORT INFORMATION
  Report Type: 
  Country: None (occurrence: None)
  Receive Date: 20041201
  Receipt Date: 20041117
  Transmission Date: 20050328
  Serious: Yes (Hospitalization)
  Sender: FDA-Public Use
  Company Number: MEDI-0002446

PATIENT
  Age: 37 Year
  Sex: Male
  Weight: 78.0187 kg

DRUGS (9)
  1. ETHYOL [Suspect]
     Indication: CHEMOTHERAPY
     Dosage: 500 MG, 5 IN 1 WK, SUBCUTANEOUS
     Route: 058
     Dates: start: 20041019, end: 20041108
  2. ETHYOL [Suspect]
     Indication: RADIOTHERAPY
     Dosage: 500 MG, 5 IN 1 WK, SUBCUTANEOUS
     Route: 058
     Dates: start: 20041019, end: 20041108
  3. RADIATION THERAPY [Concomitant]
  4. CISPLATIN [Concomitant]
  5. COMPAZINE [Concomitant]
  6. KYTRIL [Concomitant]
  7. DECADRON [Concomitant]
  8. DARVOCET-N (PARACETAMOL, DEXTROPROPOXYPHENE NAPSILATE) [Concomitant]
  9. VICODIN [Concomitant]

REACTIONS (3)
  - PAIN IN EXTREMITY [None]
  - PYREXIA [None]
  - SEPSIS [None]
